FAERS Safety Report 7461208-4 (Version None)
Quarter: 2011Q2

REPORT INFORMATION
  Report Type: 
  Country: None (occurrence: None)
  Receive Date: 20110505
  Receipt Date: 20110422
  Transmission Date: 20111010
  Serious: Yes (Other)
  Sender: FDA-Public Use
  Company Number: CN-ASTRAZENECA-2011SE23095

PATIENT

DRUGS (8)
  1. MIDAZOLAM [Concomitant]
  2. FENTANYL [Suspect]
     Indication: EPIDURAL ANAESTHESIA
  3. VECURONIUM BROMIDE [Concomitant]
  4. FENTANYL [Suspect]
  5. PROPOFOL [Suspect]
     Indication: EPIDURAL ANAESTHESIA
     Dosage: 1-1.5 MG/KG
     Route: 042
  6. PHENOBARBITAL SODIUM 100MG CAP [Concomitant]
     Dosage: 0.1 G
  7. SCOPOLAMINE [Concomitant]
     Dosage: 0.3 MG
  8. ROPIVACAINE [Suspect]
     Indication: EPIDURAL ANAESTHESIA

REACTIONS (1)
  - RESPIRATORY DEPRESSION [None]
